FAERS Safety Report 7957219-2 (Version None)
Quarter: 2011Q4

REPORT INFORMATION
  Report Type: 
  Country: None (occurrence: None)
  Receive Date: 20111205
  Receipt Date: 20111124
  Transmission Date: 20120403
  Serious: Yes (Other)
  Sender: FDA-Public Use
  Company Number: CH-BAYER-2011-113215

PATIENT
  Age: 41 Year
  Sex: Female

DRUGS (8)
  1. TOPAMAX [Suspect]
     Indication: EPILEPSY
     Route: 048
  2. TRILEPTAL [Suspect]
     Indication: EPILEPSY
     Route: 048
  3. ALITRETINOIN [Suspect]
     Indication: RASH
     Dosage: 30 MG, QD
     Route: 048
     Dates: start: 20110510
  4. LAMICTAL [Suspect]
     Indication: EPILEPSY
     Route: 048
  5. MIRENA [Suspect]
     Indication: CONTRACEPTION
     Dosage: UNK
     Route: 015
     Dates: start: 20110506
  6. CHLORDIAZEPOXIDE [Suspect]
  7. URBANYL [Suspect]
     Indication: EPILEPSY
     Route: 048
  8. ZOLOFT [Suspect]

REACTIONS (3)
  - GRAND MAL CONVULSION [None]
  - HEADACHE [None]
  - DIZZINESS [None]
